FAERS Safety Report 5483550-9 (Version None)
Quarter: 2007Q4

REPORT INFORMATION
  Report Type: 
  Country: None (occurrence: None)
  Receive Date: 20071012
  Receipt Date: 20071004
  Transmission Date: 20080405
  Serious: Yes (Death, Hospitalization)
  Sender: FDA-Public Use
  Company Number: DE-AMGEN-UK246544

PATIENT
  Sex: Male

DRUGS (3)
  1. PANITUMUMAB [Suspect]
     Indication: SQUAMOUS CELL CARCINOMA
     Route: 042
     Dates: start: 20070730, end: 20070928
  2. CISPLATIN [Suspect]
  3. FLUOROURACIL [Suspect]

REACTIONS (6)
  - BODY TEMPERATURE FLUCTUATION [None]
  - DIARRHOEA [None]
  - HYPOVOLAEMIA [None]
  - PNEUMONIA [None]
  - RENAL FAILURE [None]
  - SYSTEMIC INFLAMMATORY RESPONSE SYNDROME [None]
